FAERS Safety Report 18103105 (Version 1)
Quarter: 2020Q3

REPORT INFORMATION
  Report Type: Spontaneous
  Country: FR (occurrence: FR)
  Receive Date: 20200803
  Receipt Date: 20200803
  Transmission Date: 20201103
  Serious: Yes (Other)
  Sender: FDA-Public Use
  Company Number: NVSC2020FR212365

PATIENT
  Age: 22 Year
  Sex: Female

DRUGS (12)
  1. TACROLIMUS. [Suspect]
     Active Substance: TACROLIMUS
     Indication: EPSTEIN-BARR VIRUS ASSOCIATED LYMPHOMA
     Dosage: UNK, Q12H FROM POD 5 ONWARD
     Route: 065
     Dates: start: 201811
  2. METHYLPREDNISOLONE. [Suspect]
     Active Substance: METHYLPREDNISOLONE
     Indication: IMMUNOSUPPRESSANT DRUG THERAPY
     Dosage: 1 MG/KG, QD POD 2?7
     Route: 042
  3. TACROLIMUS. [Suspect]
     Active Substance: TACROLIMUS
     Dosage: UNK, Q12H
     Route: 065
     Dates: start: 202001
  4. RITUXIMAB. [Suspect]
     Active Substance: RITUXIMAB
     Indication: EPSTEIN-BARR VIRUS ASSOCIATED LYMPHOMA
     Dosage: 375 MG/M2, CYCLIC (4 CYCLES)
     Route: 065
     Dates: start: 202001
  5. METHYLPREDNISOLONE. [Suspect]
     Active Substance: METHYLPREDNISOLONE
     Indication: EPSTEIN-BARR VIRUS ASSOCIATED LYMPHOMA
     Dosage: 2 MG/KG, QD (POD 1)
     Route: 042
  6. RITUXIMAB. [Suspect]
     Active Substance: RITUXIMAB
     Indication: IMMUNOSUPPRESSANT DRUG THERAPY
  7. TACROLIMUS. [Suspect]
     Active Substance: TACROLIMUS
     Indication: IMMUNOSUPPRESSANT DRUG THERAPY
     Dosage: UNK, Q12H
     Route: 065
     Dates: start: 201912
  8. TACROLIMUS. [Suspect]
     Active Substance: TACROLIMUS
     Dosage: UNK, Q12H FROM POD 5 ONWARD AFTER SECOND HEART TRANSPLANT
     Route: 065
     Dates: start: 202005
  9. PREDNISONE. [Suspect]
     Active Substance: PREDNISONE
     Indication: IMMUNOSUPPRESSANT DRUG THERAPY
     Dosage: 5 MG, QD
     Route: 065
     Dates: start: 202001
  10. PREDNISONE. [Suspect]
     Active Substance: PREDNISONE
     Dosage: 30 MG, QD
     Route: 065
     Dates: start: 202003
  11. TACROLIMUS. [Suspect]
     Active Substance: TACROLIMUS
     Dosage: UNK, Q12H
     Route: 065
     Dates: start: 202003
  12. PREDNISONE. [Suspect]
     Active Substance: PREDNISONE
     Indication: EPSTEIN-BARR VIRUS ASSOCIATED LYMPHOMA
     Dosage: 5 MG, QD
     Route: 065
     Dates: start: 201912

REACTIONS (2)
  - Product use in unapproved indication [Unknown]
  - Transplant rejection [Unknown]
